FAERS Safety Report 6789125-3 (Version None)
Quarter: 2010Q2

REPORT INFORMATION
  Report Type: 
  Country: None (occurrence: None)
  Receive Date: 20100623
  Receipt Date: 20080624
  Transmission Date: 20101027
  Serious: Yes (Other)
  Sender: FDA-Public Use
  Company Number: US-PFIZER INC-2008054383

PATIENT
  Sex: Female

DRUGS (6)
  1. DEPO-PROVERA SUSPENSION/INJ [Suspect]
     Indication: CONTRACEPTION
     Dosage: 1ST INJECTION EVERY 3MONTHS
     Dates: start: 20020101, end: 20020101
  2. DEPO-PROVERA SUSPENSION/INJ [Suspect]
     Dosage: LAST INJECTION
     Dates: start: 20071001, end: 20071001
  3. FROVA [Concomitant]
  4. RELPAX [Concomitant]
  5. AMITRIPTYLINE [Concomitant]
  6. SYNTHROID [Concomitant]

REACTIONS (1)
  - WEIGHT INCREASED [None]
